FAERS Safety Report 5945916-X (Version None)
Quarter: 2008Q4

REPORT INFORMATION
  Report Type: 
  Country: None (occurrence: None)
  Receive Date: 20081105
  Receipt Date: 20081029
  Transmission Date: 20090506
  Serious: Yes (Hospitalization)
  Sender: FDA-Public Use
  Company Number: 2007SP011076

PATIENT
  Age: 56 Year
  Sex: Female

DRUGS (4)
  1. TEMODAL [Suspect]
     Indication: GLIOBLASTOMA
     Dosage: 120 MG; QD; PO;  225 MG; QD; PO
     Route: 048
     Dates: start: 20070212, end: 20070326
  2. TEMODAL [Suspect]
     Indication: GLIOBLASTOMA
     Dosage: 120 MG; QD; PO;  225 MG; QD; PO
     Route: 048
     Dates: start: 20070503
  3. MEDROL [Suspect]
     Indication: GLIOBLASTOMA
     Dosage: 96 MG; QD; PO;  64;MG; QD; PO; 16 MG; QD; PO
     Route: 048
     Dates: start: 20070212, end: 20070326
  4. MEDROL [Suspect]
     Indication: GLIOBLASTOMA
     Dosage: 96 MG; QD; PO;  64;MG; QD; PO; 16 MG; QD; PO
     Route: 048
     Dates: start: 20070503

REACTIONS (3)
  - INTERSTITIAL LUNG DISEASE [None]
  - LYMPHOPENIA [None]
  - PNEUMONIA [None]
